FAERS Safety Report 6830014-3 (Version None)
Quarter: 2010Q3

REPORT INFORMATION
  Report Type: 
  Country: None (occurrence: None)
  Receive Date: 20100711
  Receipt Date: 20100427
  Transmission Date: 20110219
  Serious: No
  Sender: FDA-Public Use
  Company Number: US-ALLERGAN-1005509US

PATIENT
  Sex: Female

DRUGS (5)
  1. LATISSE [Suspect]
     Indication: GROWTH OF EYELASHES
     Dosage: 1 GTT, QHS
     Dates: start: 20100225, end: 20100422
  2. LIPITOR [Concomitant]
     Indication: HYPERCHOLESTEROLAEMIA
     Dosage: UNK
  3. VITAMIN A [Concomitant]
     Dosage: UNK
  4. CALCIUM CARBONATE [Suspect]
  5. NEW LASH EYELASH ENHANCER [Concomitant]

REACTIONS (1)
  - DRUG INEFFECTIVE [None]
